FAERS Safety Report 12073663 (Version 2)
Quarter: 2016Q1

REPORT INFORMATION
  Report Type: Spontaneous
  Country: FI (occurrence: FI)
  Receive Date: 20160212
  Receipt Date: 20160216
  Transmission Date: 20160526
  Serious: Yes (Death, Hospitalization)
  Sender: FDA-Public Use
  Company Number: FI-009507513-1602FIN005766

PATIENT

DRUGS (2)
  1. INSULIN [Suspect]
     Active Substance: INSULIN NOS
     Dosage: UNK
  2. SITAGLIPTIN PHOSPHATE [Suspect]
     Active Substance: SITAGLIPTIN PHOSPHATE
     Dosage: UNK
     Route: 048

REACTIONS (1)
  - Hypoglycaemia [Fatal]
